FAERS Safety Report 18961902 (Version 4)
Quarter: 2021Q2

REPORT INFORMATION
  Report Type: Report from Study
  Country: None (occurrence: US)
  Receive Date: 20210302
  Receipt Date: 20210422
  Transmission Date: 20210717
  Serious: Yes (Hospitalization, Other)
  Sender: FDA-Public Use
  Company Number: US-ABBVIE-21K-163-3791874-00

PATIENT
  Age: 63 Year
  Sex: Female
  Weight: 79.45 kg

DRUGS (7)
  1. SKYRIZI [Suspect]
     Active Substance: RISANKIZUMAB-RZAA
     Route: 058
     Dates: start: 202010, end: 20210119
  2. SKYRIZI [Suspect]
     Active Substance: RISANKIZUMAB-RZAA
     Indication: PSORIASIS
     Route: 058
     Dates: start: 202009, end: 202009
  3. COVID?19 VACCINE NOS. [Suspect]
     Active Substance: COVID-19 VACCINE NOS
     Indication: COVID-19 IMMUNISATION
     Route: 030
     Dates: start: 20210327, end: 20210327
  4. SKYRIZI [Suspect]
     Active Substance: RISANKIZUMAB-RZAA
     Route: 058
     Dates: start: 202009, end: 202010
  5. LOSARTAN. [Concomitant]
     Active Substance: LOSARTAN
     Indication: HYPERTENSION
  6. FLEXERIL [Concomitant]
     Active Substance: CYCLOBENZAPRINE HYDROCHLORIDE
     Indication: MUSCLE SPASMS
  7. ROSUVASTATIN. [Concomitant]
     Active Substance: ROSUVASTATIN
     Indication: BLOOD CHOLESTEROL INCREASED

REACTIONS (28)
  - Joint abscess [Recovering/Resolving]
  - Bacteraemia [Recovering/Resolving]
  - Gait disturbance [Unknown]
  - Wound [Unknown]
  - Spinal cord abscess [Recovering/Resolving]
  - COVID-19 [Unknown]
  - Somnolence [Recovered/Resolved]
  - Blood count abnormal [Recovering/Resolving]
  - Nasopharyngitis [Recovered/Resolved]
  - Drug ineffective [Unknown]
  - Staphylococcal infection [Unknown]
  - Groin abscess [Recovering/Resolving]
  - Immunosuppression [Unknown]
  - Pain [Not Recovered/Not Resolved]
  - Osteomyelitis [Unknown]
  - Purulent discharge [Unknown]
  - Intervertebral disc protrusion [Recovering/Resolving]
  - Spinal cord infection [Recovering/Resolving]
  - Psoriasis [Not Recovered/Not Resolved]
  - Back pain [Recovering/Resolving]
  - Sinus disorder [Recovered/Resolved]
  - Arthropathy [Unknown]
  - Unevaluable event [Unknown]
  - Arthralgia [Recovering/Resolving]
  - General physical health deterioration [Unknown]
  - Skin lesion [Unknown]
  - Platelet count increased [Recovered/Resolved]
  - Skin fissures [Unknown]

NARRATIVE: CASE EVENT DATE: 202012
